FAERS Safety Report 9785903 (Version 4)
Quarter: 2014Q1

REPORT INFORMATION
  Report Type: Spontaneous
  Country: US (occurrence: US)
  Receive Date: 20131227
  Receipt Date: 20140306
  Transmission Date: 20141002
  Serious: Yes (Hospitalization, Other)
  Sender: FDA-Public Use
  Company Number: US-PFIZER INC-2013370834

PATIENT
  Age: 59 Year
  Sex: Female

DRUGS (13)
  1. LYRICA [Suspect]
     Indication: PAIN
     Dosage: UNK
     Route: 048
  2. NEURONTIN [Suspect]
     Indication: PAIN
     Dosage: UNK
     Route: 048
  3. MIRAPEX [Suspect]
     Dosage: UNK
     Route: 048
  4. AMLODIPINE [Concomitant]
     Dosage: UNK
  5. CYMBALTA [Concomitant]
     Indication: DEPRESSION
     Dosage: 90 MG, QDAY
  6. DIAZEPAM [Concomitant]
     Dosage: 5 MG, QDAY
  7. FLUOXETIN [Concomitant]
     Indication: DEPRESSION
     Dosage: 40 MG, QDAY
  8. LIDODERM [Concomitant]
     Dosage: UNK
  9. NAPROXEN [Concomitant]
     Dosage: UNK
  10. OXYCONTIN [Concomitant]
     Dosage: 20MG Q12
  11. OXYCONTIN [Concomitant]
     Dosage: 5MG 2 TAB Q6
  12. OXYCODONE [Concomitant]
     Dosage: UNK
  13. PROTONIX [Concomitant]
     Dosage: UNK

REACTIONS (3)
  - Suicidal ideation [Recovered/Resolved]
  - Hallucination [Recovered/Resolved]
  - Depression [Recovered/Resolved]
